FAERS Safety Report 22211498 (Version 1)
Quarter: 2023Q2

REPORT INFORMATION
  Report Type: Spontaneous
  Country: NL (occurrence: NL)
  Receive Date: 20230414
  Receipt Date: 20230414
  Transmission Date: 20230722
  Serious: Yes (Life-Threatening)
  Sender: FDA-Public Use
  Company Number: None

PATIENT
  Sex: Male
  Weight: 121 kg

DRUGS (3)
  1. ACETAMINOPHEN [Interacting]
     Active Substance: ACETAMINOPHEN
     Indication: Arthralgia
     Dosage: 1000MG 4 X PER DAG
     Route: 065
     Dates: start: 20230125, end: 20230203
  2. DEXMEDETOMIDINE [Concomitant]
     Active Substance: DEXMEDETOMIDINE
     Dosage: INFUSIEVLOEISTOF, 4 ?G/ML (MICROGRAM PER MILLILITER)
  3. FLUCLOXACILLIN [Interacting]
     Active Substance: FLUCLOXACILLIN
     Indication: Staphylococcal bacteraemia
     Dosage: 12GRAM PER DAG
     Dates: start: 20230129, end: 20230203

REACTIONS (2)
  - Drug interaction [Recovered/Resolved]
  - Metabolic acidosis [Recovered/Resolved]
